FAERS Safety Report 13243436 (Version 1)
Quarter: 2017Q1

REPORT INFORMATION
  Report Type: Spontaneous
  Country: US (occurrence: US)
  Receive Date: 20170216
  Receipt Date: 20170216
  Transmission Date: 20170428
  Serious: No
  Sender: FDA-Public Use
  Company Number: US-ALLERGAN-1700114US

PATIENT
  Age: 29 Year
  Sex: Male

DRUGS (1)
  1. KYBELLA [Suspect]
     Active Substance: DEOXYCHOLIC ACID
     Indication: FAT TISSUE INCREASED
     Dosage: UNK, SINGLE
     Route: 058
     Dates: start: 201610, end: 201610

REACTIONS (7)
  - Soft tissue disorder [Recovered/Resolved]
  - Muscular weakness [Not Recovered/Not Resolved]
  - Haematochezia [Recovered/Resolved]
  - Dyskinesia [Not Recovered/Not Resolved]
  - Anorectal disorder [Recovered/Resolved]
  - Abnormal faeces [Recovered/Resolved]
  - Drug ineffective [Unknown]

NARRATIVE: CASE EVENT DATE: 201610
